FAERS Safety Report 15235994 (Version 2)
Quarter: 2018Q3

REPORT INFORMATION
  Report Type: Spontaneous
  Country: DZ (occurrence: DZ)
  Receive Date: 20180803
  Receipt Date: 20180813
  Transmission Date: 20181010
  Serious: Yes (Disabling, Other)
  Sender: FDA-Public Use
  Company Number: DZ-MYLANLABS-2018M1058490

PATIENT
  Age: 43 Year
  Sex: Female
  Weight: 57 kg

DRUGS (2)
  1. DOCETAXEL. [Concomitant]
     Active Substance: DOCETAXEL
     Indication: BREAST CANCER
     Dosage: 3, CYCLE
     Route: 042
     Dates: start: 20170308
  2. CANMAB [Suspect]
     Active Substance: TRASTUZUMAB
     Indication: BREAST CANCER
     Dosage: UNK
     Route: 042
     Dates: start: 20170308, end: 20180725

REACTIONS (2)
  - Visual acuity reduced [Recovering/Resolving]
  - Blindness [Unknown]

NARRATIVE: CASE EVENT DATE: 20180516
